FAERS Safety Report 20591922 (Version 3)
Quarter: 2022Q2

REPORT INFORMATION
  Report Type: Report from Study
  Country: US (occurrence: US)
  Receive Date: 20220314
  Receipt Date: 20220429
  Transmission Date: 20220721
  Serious: Yes (Life-Threatening, Hospitalization, Other)
  Sender: FDA-Public Use
  Company Number: US-BRISTOL-MYERS SQUIBB COMPANY-BMS-2022-037385

PATIENT
  Age: 10 Year
  Sex: Male
  Weight: 27.7 kg

DRUGS (7)
  1. NIVOLUMAB [Suspect]
     Active Substance: NIVOLUMAB
     Indication: Brain stem glioma
     Route: 042
     Dates: start: 20210921, end: 20220317
  2. NIVOLUMAB [Suspect]
     Active Substance: NIVOLUMAB
     Route: 042
     Dates: start: 20211025, end: 20220301
  3. HILTONOL [Suspect]
     Active Substance: HILTONOL
     Indication: Product used for unknown indication
     Dosage: 0.85 MILLIGRAM, Q3WK
     Route: 030
     Dates: start: 20211025, end: 20220317
  4. INVESTIGATIONAL PRODUCT [Suspect]
     Active Substance: INVESTIGATIONAL PRODUCT
     Indication: Brain stem glioma
     Dosage: 0.8 MILLILITER, Q3WK
     Route: 058
     Dates: start: 20210921, end: 20220317
  5. INVESTIGATIONAL PRODUCT [Suspect]
     Active Substance: INVESTIGATIONAL PRODUCT
     Route: 058
     Dates: start: 20211025, end: 20220301
  6. NIVOLUMAB [Suspect]
     Active Substance: NIVOLUMAB
     Route: 042
     Dates: start: 20211025, end: 20220301
  7. DEXAMETHASONE [Concomitant]
     Active Substance: DEXAMETHASONE
     Indication: Product used for unknown indication
     Dosage: 1MG STARTED APPROXIMATELY 05-MAR-2022
     Route: 065

REACTIONS (3)
  - Aspiration [Unknown]
  - Vomiting [Unknown]
  - Glossopharyngeal nerve disorder [Unknown]

NARRATIVE: CASE EVENT DATE: 20220305
